FAERS Safety Report 19990724 (Version 1)
Quarter: 2021Q4

REPORT INFORMATION
  Report Type: Spontaneous
  Country: US (occurrence: US)
  Receive Date: 20211023
  Receipt Date: 20211023
  Transmission Date: 20220303
  Serious: Yes (Hospitalization)
  Sender: FDA-Public Use
  Company Number: None

PATIENT
  Age: 69 Year
  Sex: Female
  Weight: 69.85 kg

DRUGS (9)
  1. SPRYCEL [Suspect]
     Active Substance: DASATINIB
     Dates: end: 20210920
  2. CYCLOPHOSPHAMIDE [Suspect]
     Active Substance: CYCLOPHOSPHAMIDE
     Dates: end: 20210910
  3. CYTARABINE [Suspect]
     Active Substance: CYTARABINE
     Dates: end: 20210908
  4. DEXAMETHASONE [Suspect]
     Active Substance: DEXAMETHASONE
     Dates: end: 20210920
  5. DOXORUBICIN HYDROCHLORIDE [Suspect]
     Active Substance: DOXORUBICIN HYDROCHLORIDE
     Dates: end: 20210910
  6. MESNA [Suspect]
     Active Substance: MESNA
     Dates: end: 20210910
  7. METHOTREXATE [Suspect]
     Active Substance: METHOTREXATE
     Dates: end: 20210914
  8. PREDNISONE [Suspect]
     Active Substance: PREDNISONE
     Dates: end: 20210831
  9. VINCRISTINE SULFATE [Suspect]
     Active Substance: VINCRISTINE SULFATE
     Dates: end: 20210917

REACTIONS (7)
  - Sepsis [None]
  - Acute kidney injury [None]
  - Therapy interrupted [None]
  - Dyspnoea [None]
  - Pleural effusion [None]
  - Hypervolaemia [None]
  - Hypoxia [None]

NARRATIVE: CASE EVENT DATE: 20211020
